FAERS Safety Report 20822708 (Version 1)
Quarter: 2022Q2

REPORT INFORMATION
  Report Type: Other
  Country: None (occurrence: JP)
  Receive Date: 20220512
  Receipt Date: 20220512
  Transmission Date: 20220721
  Serious: Yes (Other)
  Sender: FDA-Public Use
  Company Number: JP-B.Braun Medical Inc.-2128739

PATIENT
  Sex: Male

DRUGS (1)
  1. MAGNESIUM SULFATE IN DEXTROSE [Suspect]
     Active Substance: MAGNESIUM SULFATE

REACTIONS (8)
  - Foetal exposure during pregnancy [Unknown]
  - Hypercalcaemia [Unknown]
  - Hypercalciuria [Unknown]
  - Blood albumin decreased [Unknown]
  - Neonatal hypocalcaemia [Unknown]
  - Hypotonia neonatal [Unknown]
  - Neonatal respiratory distress [Unknown]
  - Bone development abnormal [Unknown]
